FAERS Safety Report 8117728-2 (Version None)
Quarter: 2012Q1

REPORT INFORMATION
  Report Type: 
  Country: None (occurrence: None)
  Receive Date: 20120202
  Receipt Date: 20120124
  Transmission Date: 20120608
  Serious: Yes (Hospitalization, Other)
  Sender: FDA-Public Use
  Company Number: 2012ST000094

PATIENT
  Age: 11 Year
  Sex: Male
  Weight: 14.3 kg

DRUGS (13)
  1. ONCASPAR [Suspect]
     Indication: B PRECURSOR TYPE ACUTE LEUKAEMIA
     Dosage: 2500 IU; ;IM
     Route: 030
     Dates: start: 20111213, end: 20120103
  2. VINCRISTINE SULFATE [Suspect]
     Indication: B PRECURSOR TYPE ACUTE LEUKAEMIA
     Dosage: 1.5 MG/M**2; ;IV
     Route: 042
     Dates: start: 20111213, end: 20120109
  3. CYTARABINE [Suspect]
     Indication: B PRECURSOR TYPE ACUTE LEUKAEMIA
     Dosage: 70 MG;X1;INTH
     Route: 037
     Dates: start: 20111213, end: 20111213
  4. VANCOMYCIN [Concomitant]
  5. CEFEPIME [Concomitant]
  6. BACTRIM [Concomitant]
  7. MICAFUNGIN [Concomitant]
  8. VELCADE [Suspect]
     Indication: B PRECURSOR TYPE ACUTE LEUKAEMIA
     Dosage: 1.3 MG/M**2; ; IV
     Route: 042
     Dates: start: 20111213, end: 20111223
  9. METHOTREXATE [Suspect]
     Indication: B PRECURSOR TYPE ACUTE LEUKAEMIA
     Dosage: ;INTH
     Route: 037
     Dates: start: 20111213, end: 20120110
  10. DOXORUBICIN HCL [Suspect]
     Indication: B PRECURSOR TYPE ACUTE LEUKAEMIA
     Dosage: 60 MG/M**2;X1;IV
     Route: 042
     Dates: start: 20111213, end: 20111213
  11. MEROPENEM [Concomitant]
  12. PREDNISONE [Suspect]
     Indication: B PRECURSOR TYPE ACUTE LEUKAEMIA
     Dosage: 20 MG/M**2; ;PO
     Route: 048
     Dates: start: 20111213, end: 20120109
  13. CLINDAMYCIN [Concomitant]

REACTIONS (16)
  - TACHYCARDIA [None]
  - PULSE PRESSURE INCREASED [None]
  - STAPHYLOCOCCAL INFECTION [None]
  - FEBRILE NEUTROPENIA [None]
  - RASH [None]
  - ORAL PAIN [None]
  - HYPOPHAGIA [None]
  - NEUTROPENIA [None]
  - ORAL DISORDER [None]
  - BACTERIAL INFECTION [None]
  - PROCTITIS [None]
  - DEVICE RELATED INFECTION [None]
  - POLYMERASE CHAIN REACTION [None]
  - HERPES SIMPLEX [None]
  - BONE MARROW FAILURE [None]
  - MUCOSAL INFECTION [None]
